FAERS Safety Report 10978466 (Version 2)
Quarter: 2015Q2

REPORT INFORMATION
  Report Type: Report from Study
  Country: CA (occurrence: CA)
  Receive Date: 20150402
  Receipt Date: 20150415
  Transmission Date: 20150821
  Serious: Yes (Death)
  Sender: FDA-Public Use
  Company Number: CA-SA-2015SA041406

PATIENT
  Age: 67 Year
  Sex: Male
  Weight: 84.6 kg

DRUGS (1)
  1. JEVTANA [Suspect]
     Active Substance: CABAZITAXEL
     Indication: PROSTATE CANCER METASTATIC
     Route: 042
     Dates: start: 20141002, end: 20141114

REACTIONS (1)
  - Death [Fatal]

NARRATIVE: CASE EVENT DATE: 20150312
